FAERS Safety Report 5376065-X (Version None)
Quarter: 2007Q3

REPORT INFORMATION
  Report Type: 
  Country: None (occurrence: None)
  Receive Date: 20070702
  Receipt Date: 20070702
  Transmission Date: 20080115
  Serious: No
  Sender: FDA-Public Use
  Company Number: None

PATIENT
  Age: 14 Year
  Sex: Female
  Weight: 68.0396 kg

DRUGS (2)
  1. FOCALIN XR [Suspect]
     Indication: ATTENTION DEFICIT/HYPERACTIVITY DISORDER
     Dosage: 2 CAP BID BY MOUTH
     Route: 048
  2. FOCALIN XR [Suspect]
     Indication: ATTENTION DEFICIT/HYPERACTIVITY DISORDER
     Dosage: 1 CAP Q DAY BY MOUTH
     Route: 048

REACTIONS (3)
  - ABNORMAL BEHAVIOUR [None]
  - HYPERPHAGIA [None]
  - PHARMACEUTICAL PRODUCT COMPLAINT [None]
